FAERS Safety Report 18067438 (Version 1)
Quarter: 2020Q3

REPORT INFORMATION
  Report Type: Report from Study
  Country: PK (occurrence: PK)
  Receive Date: 20200724
  Receipt Date: 20200724
  Transmission Date: 20201103
  Serious: Yes (Death)
  Sender: FDA-Public Use
  Company Number: NVSC2020PK207368

PATIENT
  Age: 68 Year
  Sex: Male

DRUGS (3)
  1. REVITALE B [Concomitant]
     Indication: PRODUCT USED FOR UNKNOWN INDICATION
     Dosage: 1 DF (HS)
     Route: 048
  2. LEVOSULPRIDE [Concomitant]
     Active Substance: LEVOSULPIRIDE
     Indication: GASTROINTESTINAL DISORDER
     Dosage: 25 MG, QD
     Route: 048
  3. DIOVAN [Suspect]
     Active Substance: VALSARTAN
     Indication: HYPERTENSION
     Dosage: 160 MG, QD
     Route: 048
     Dates: start: 20200107

REACTIONS (1)
  - Myocardial infarction [Fatal]
